FAERS Safety Report 7783473-6 (Version None)
Quarter: 2011Q3

REPORT INFORMATION
  Report Type: 
  Country: None (occurrence: None)
  Receive Date: 20110928
  Receipt Date: 20110923
  Transmission Date: 20111222
  Serious: Yes (Death, Other)
  Sender: FDA-Public Use
  Company Number: US-PFIZER INC-2009265492

PATIENT
  Sex: Female
  Weight: 63 kg

DRUGS (1)
  1. ZOLOFT [Suspect]
     Indication: PSYCHOTIC DISORDER
     Dosage: UNK

REACTIONS (4)
  - COMPLETED SUICIDE [None]
  - PARANOIA [None]
  - PSYCHOTIC DISORDER [None]
  - HOMICIDE [None]
